FAERS Safety Report 9836730 (Version 2)
Quarter: 2014Q1

REPORT INFORMATION
  Report Type: Spontaneous
  Country: SE (occurrence: SE)
  Receive Date: 20140123
  Receipt Date: 20140306
  Transmission Date: 20141002
  Serious: Yes (Other)
  Sender: FDA-Public Use
  Company Number: PHHY2014SE004824

PATIENT
  Sex: 0

DRUGS (10)
  1. ACLASTA [Suspect]
     Indication: OSTEOPOROSIS
     Dosage: 5 MG, UNK
     Route: 042
  2. ACLASTA [Suspect]
     Dosage: 5 MG, UNK
     Route: 042
     Dates: start: 20131127
  3. OXASCAND [Concomitant]
     Dosage: UNK UKN, PRN
  4. BEHEPAN [Concomitant]
     Dosage: UNK
  5. EBIXA [Concomitant]
     Dosage: UNK
  6. KALCIPOS-D [Concomitant]
     Dosage: 500MG/800 IE
  7. IMOVANE [Concomitant]
     Dosage: 5 MG, UNK
  8. LANSOPRAZOL ARROW [Concomitant]
     Dosage: 30 MG, UNK
  9. MOVICOL [Concomitant]
     Dosage: UNK
     Route: 048
  10. VAGIFEM [Concomitant]
     Dosage: 10 UG, UNK
     Route: 067

REACTIONS (1)
  - Hallucination, visual [Recovered/Resolved]
